FAERS Safety Report 6006973-8 (Version None)
Quarter: 2008Q4

REPORT INFORMATION
  Report Type: 
  Country: None (occurrence: None)
  Receive Date: 20081217
  Receipt Date: 20080213
  Transmission Date: 20090506
  Serious: No
  Sender: FDA-Public Use
  Company Number: US-ASTRAZENECA-2007UW27940

PATIENT
  Age: 47 Year
  Sex: Male
  Weight: 94.1 kg

DRUGS (2)
  1. CRESTOR [Suspect]
     Indication: BLOOD CHOLESTEROL INCREASED
     Route: 048
  2. PRILOSEC OTC [Concomitant]

REACTIONS (5)
  - BOWEL MOVEMENT IRREGULARITY [None]
  - DIARRHOEA [None]
  - DYSPHONIA [None]
  - FLATULENCE [None]
  - INCREASED UPPER AIRWAY SECRETION [None]
